FAERS Safety Report 21309032 (Version 4)
Quarter: 2022Q4

REPORT INFORMATION
  Report Type: Report from Study
  Country: US (occurrence: US)
  Receive Date: 20220908
  Receipt Date: 20221229
  Transmission Date: 20230113
  Serious: No
  Sender: FDA-Public Use
  Company Number: US-NOVARTISTESTPH-NVSC2022US201635

PATIENT
  Age: 41 Year
  Sex: Female

DRUGS (1)
  1. KESIMPTA [Suspect]
     Active Substance: OFATUMUMAB
     Indication: Relapsing multiple sclerosis
     Dosage: 20 MG, QMO
     Route: 058
     Dates: start: 20220419

REACTIONS (6)
  - Eye disorder [Unknown]
  - Micturition urgency [Unknown]
  - Feeling cold [Unknown]
  - Urinary incontinence [Unknown]
  - Hypoaesthesia [Unknown]
  - Injection site pain [Unknown]

NARRATIVE: CASE EVENT DATE: 20220906
